FAERS Safety Report 22061697 (Version 1)
Quarter: 2023Q1

REPORT INFORMATION
  Report Type: Spontaneous
  Country: TW (occurrence: TW)
  Receive Date: 20230304
  Receipt Date: 20230304
  Transmission Date: 20230417
  Serious: Yes (Hospitalization)
  Sender: FDA-Public Use
  Company Number: TW-ABBVIE-4224223

PATIENT
  Age: 64 Year
  Sex: Female
  Weight: 48 kg

DRUGS (5)
  1. HUMIRA [Suspect]
     Active Substance: ADALIMUMAB
     Indication: Rheumatoid arthritis
     Route: 058
     Dates: start: 20101210
  2. UNASYN [Concomitant]
     Active Substance: AMPICILLIN SODIUM\SULBACTAM SODIUM
     Indication: Antibiotic therapy
     Dosage: FORM STRENGTH: 1.5 GRAM
     Route: 042
     Dates: start: 20221108, end: 20221111
  3. SALINE [Concomitant]
     Active Substance: SODIUM CHLORIDE
     Indication: Product used for unknown indication
     Dosage: FORM STRENGTH: 50 MILLILITRE(S)
     Route: 041
     Dates: start: 20221105, end: 20221111
  4. OCILLINA [Concomitant]
     Indication: Antibiotic therapy
     Dosage: FORM STRENGTH: 500 MILLIGRAM
     Route: 042
     Dates: start: 20221105, end: 20221108
  5. TRAMADOL [Concomitant]
     Active Substance: TRAMADOL
     Indication: Analgesic therapy
     Dosage: FORM STRENGTH: 50 MILLIGRAM
     Route: 042
     Dates: start: 20221105, end: 20221108

REACTIONS (4)
  - Osteoarthritis [Recovered/Resolved]
  - C-reactive protein increased [Unknown]
  - Arthritis bacterial [Recovered/Resolved]
  - Joint abscess [Recovered/Resolved]

NARRATIVE: CASE EVENT DATE: 20221104
